FAERS Safety Report 11331930 (Version 1)
Quarter: 2015Q3

REPORT INFORMATION
  Report Type: Spontaneous
  Country: US (occurrence: US)
  Receive Date: 20150803
  Receipt Date: 20150803
  Transmission Date: 20151125
  Serious: No
  Sender: FDA-Public Use
  Company Number: US-ELI_LILLY_AND_COMPANY-US200805006246

PATIENT
  Sex: Male

DRUGS (4)
  1. BENICAR [Concomitant]
     Active Substance: OLMESARTAN MEDOXOMIL
  2. ZYPREXA [Suspect]
     Active Substance: OLANZAPINE
     Indication: TACHYPHRENIA
     Dates: start: 1997, end: 2005
  3. CELEBREX [Concomitant]
     Active Substance: CELECOXIB
  4. MAXZIDE [Concomitant]
     Active Substance: HYDROCHLOROTHIAZIDE\TRIAMTERENE

REACTIONS (3)
  - Glucose tolerance impaired [Unknown]
  - Hypertension [Recovered/Resolved]
  - Blood glucose increased [Unknown]
